FAERS Safety Report 7202505-7 (Version None)
Quarter: 2010Q4

REPORT INFORMATION
  Report Type: 
  Country: None (occurrence: None)
  Receive Date: 20101229
  Receipt Date: 20101224
  Transmission Date: 20110411
  Serious: Yes (Death, Hospitalization)
  Sender: FDA-Public Use
  Company Number: PHFR2010IE00919

PATIENT
  Sex: Female

DRUGS (2)
  1. CLOZARIL [Suspect]
     Indication: SCHIZOPHRENIA
     Dosage: 350 MG
     Route: 048
     Dates: start: 19960626
  2. CLOZARIL [Suspect]
     Dosage: 150 MG
     Route: 048

REACTIONS (2)
  - CERVIX CARCINOMA [None]
  - INCORRECT DOSE ADMINISTERED [None]
